FAERS Safety Report 9512363 (Version 1)
Quarter: 2013Q1

REPORT INFORMATION
  Report Type: Spontaneous
  Country: US (occurrence: None)
  Receive Date: 20130305
  Receipt Date: 20130305
  Transmission Date: 20140127
  Serious: Yes (Other)
  Sender: FDA-Public Use
  Company Number: 163-21880-12101172

PATIENT
  Age: 76 Year
  Sex: Female

DRUGS (2)
  1. REVLIMID (LENALIDOMIDE) (15 MILLIGRAM, CAPSULES) [Suspect]
     Indication: PLASMA CELL MYELOMA
     Dosage: 15 MG, 28 IN 28 D, PO
     Route: 048
     Dates: start: 20120206, end: 201209
  2. ZIRGAN (GANCICLOVIR) (EYE DROPS) [Concomitant]

REACTIONS (8)
  - Platelet count decreased [None]
  - Drug dose omission [None]
  - Herpes virus infection [None]
  - Diarrhoea [None]
  - Plantar fasciitis [None]
  - Injury corneal [None]
  - Insomnia [None]
  - Muscle spasms [None]
